FAERS Safety Report 9138602 (Version 1)
Quarter: 2013Q1

REPORT INFORMATION
  Report Type: Spontaneous
  Country: US (occurrence: None)
  Receive Date: 20130204
  Receipt Date: 20130204
  Transmission Date: 20140127
  Serious: Yes (Death)
  Sender: FDA-Public Use
  Company Number: IMP_06242_2013

PATIENT
  Age: 20 Year
  Sex: Male

DRUGS (7)
  1. OXYMORPHONE [Suspect]
     Indication: PRODUCT USED FOR UNKNOWN INDICATION
  2. ALPRAZOLAM [Suspect]
     Indication: PRODUCT USED FOR UNKNOWN INDICATION
     Dosage: (DF ORAL)
     Route: 048
  3. CITALOPRAM [Suspect]
     Indication: PRODUCT USED FOR UNKNOWN INDICATION
     Dosage: (DF ORAL)
     Route: 048
  4. CARISOPRODOL [Suspect]
     Indication: PRODUCT USED FOR UNKNOWN INDICATION
     Route: 048
  5. ZOLPIDEM [Suspect]
     Indication: PRODUCT USED FOR UNKNOWN INDICATION
     Dosage: (DF ORAL)
     Route: 048
  6. CLONAZEPAM [Suspect]
  7. THC HOMOLOG [Suspect]
     Indication: PRODUCT USED FOR UNKNOWN INDICATION
     Dosage: (DF ORAL)
     Route: 048

REACTIONS (3)
  - Cardiac arrest [None]
  - Respiratory arrest [None]
  - Drug abuse [None]
